FAERS Safety Report 25522207 (Version 1)
Quarter: 2025Q3

REPORT INFORMATION
  Report Type: Spontaneous
  Country: CN (occurrence: CN)
  Receive Date: 20250707
  Receipt Date: 20250707
  Transmission Date: 20251020
  Serious: Yes (Hospitalization, Other)
  Sender: NEXUS PHARMACEUTICALS
  Company Number: CN-Nexus Pharma-000425

PATIENT
  Age: 74 Year
  Sex: Female

DRUGS (1)
  1. METHYLENE BLUE [Suspect]
     Active Substance: METHYLENE BLUE
     Indication: Methaemoglobinaemia
     Route: 042

REACTIONS (2)
  - Haemolytic anaemia [Recovered/Resolved]
  - Acute kidney injury [Recovered/Resolved]
